FAERS Safety Report 21158791 (Version 3)
Quarter: 2022Q4

REPORT INFORMATION
  Report Type: Spontaneous
  Country: GR (occurrence: GR)
  Receive Date: 20220802
  Receipt Date: 20221208
  Transmission Date: 20230113
  Serious: Yes (Other)
  Sender: FDA-Public Use
  Company Number: GR-CELLTRION INC.-2022GR012100

PATIENT

DRUGS (19)
  1. RITUXIMAB [Suspect]
     Active Substance: RITUXIMAB
     Indication: Waldenstrom^s macroglobulinaemia
     Dosage: PLEX PLUS DRC (PRIOR TO BNS)
  2. RITUXIMAB [Suspect]
     Active Substance: RITUXIMAB
     Indication: Bing-Neel syndrome
     Dosage: PLEX PLUS FCR (PRIOR TO BNS)
  3. RITUXIMAB [Suspect]
     Active Substance: RITUXIMAB
     Dosage: RECEIVED 6 CYCLE
  4. DEXAMETHASONE [Suspect]
     Active Substance: DEXAMETHASONE
     Indication: Waldenstrom^s macroglobulinaemia
     Dosage: PLEX PLUS DRC (PRIOR TO BNS)
  5. CYCLOPHOSPHAMIDE [Suspect]
     Active Substance: CYCLOPHOSPHAMIDE
     Indication: Waldenstrom^s macroglobulinaemia
     Dosage: PLEX PLUS DRC (PRIOR TO BNS)
  6. CYCLOPHOSPHAMIDE [Suspect]
     Active Substance: CYCLOPHOSPHAMIDE
     Dosage: CEOP (PRIOR TO BNS)
  7. CYCLOPHOSPHAMIDE [Suspect]
     Active Substance: CYCLOPHOSPHAMIDE
     Dosage: PLEX PLUS FCR (PRIOR TO BNS)
  8. FLUDARABINE [Suspect]
     Active Substance: FLUDARABINE PHOSPHATE
     Indication: Waldenstrom^s macroglobulinaemia
     Dosage: PLEX PLUS FCR (PRIOR TO BNS)
  9. ETOPOSIDE [Suspect]
     Active Substance: ETOPOSIDE
     Indication: Waldenstrom^s macroglobulinaemia
     Dosage: CEOP (PRIOR TO BNS)
  10. VINCRISTINE [Suspect]
     Active Substance: VINCRISTINE
     Indication: Waldenstrom^s macroglobulinaemia
     Dosage: CEOP (PRIOR TO BNS)
  11. PREDNISONE [Suspect]
     Active Substance: PREDNISONE
     Indication: Waldenstrom^s macroglobulinaemia
     Dosage: CEOP (PRIOR TO BNS)
  12. IBRUTINIB [Suspect]
     Active Substance: IBRUTINIB
     Indication: Bing-Neel syndrome
     Dosage: BNS TREATMENT
  13. METHOTREXATE [Concomitant]
     Active Substance: METHOTREXATE
     Dosage: RECEIVED 4 CYCLE
  14. DEXAMETHASONE [Concomitant]
     Active Substance: DEXAMETHASONE
     Dosage: RECEIVED 4 CYCLE
  15. CYTARABINE [Concomitant]
     Active Substance: CYTARABINE
     Dosage: RECEIVED 4 CYCLE
  16. IBRUTINIB [Concomitant]
     Active Substance: IBRUTINIB
     Indication: Bing-Neel syndrome
  17. BENDAMUSTINE [Concomitant]
     Active Substance: BENDAMUSTINE
     Indication: Bing-Neel syndrome
     Dosage: BNS TREATMENT (ONE CYCLE)
  18. BENDAMUSTINE [Concomitant]
     Active Substance: BENDAMUSTINE
     Dosage: RECEIVED 6 CYCLE
  19. VENETOCLAX [Concomitant]
     Active Substance: VENETOCLAX

REACTIONS (4)
  - Drug intolerance [Unknown]
  - Drug ineffective [Unknown]
  - No adverse event [Unknown]
  - Off label use [Unknown]
